FAERS Safety Report 9320304 (Version 2)
Quarter: 2013Q2

REPORT INFORMATION
  Report Type: Spontaneous
  Country: CA (occurrence: CA)
  Receive Date: 20130530
  Receipt Date: 20130603
  Transmission Date: 20140414
  Serious: Yes (Hospitalization)
  Sender: FDA-Public Use
  Company Number: CA-B.I. PHARMACEUTICALS,INC./RIDGEFIELD-2013-CN-00944CN

PATIENT
  Age: 66 Year
  Sex: Male

DRUGS (1)
  1. PRADAXA [Suspect]
     Indication: ATRIAL FIBRILLATION
     Dosage: 300 MG
     Dates: start: 201211, end: 201304

REACTIONS (4)
  - Blood urine present [Recovered/Resolved]
  - Blood glucose abnormal [Recovered/Resolved]
  - Faeces discoloured [Recovered/Resolved]
  - Weight decreased [Unknown]
